FAERS Safety Report 4894969-9 (Version None)
Quarter: 2006Q1

REPORT INFORMATION
  Report Type: 
  Country: None (occurrence: None)
  Receive Date: 20060130
  Receipt Date: 20050601
  Transmission Date: 20060701
  Serious: No
  Sender: FDA-Public Use
  Company Number: US-BRISTOL-MYERS SQUIBB COMPANY-12990610

PATIENT
  Age: 61 Year
  Sex: Female
  Weight: 53 kg

DRUGS (4)
  1. METFORMIN HCL [Suspect]
     Indication: DIABETES MELLITUS NON-INSULIN-DEPENDENT
     Dates: start: 20030601
  2. GLIPIZIDE [Concomitant]
  3. ALTACE [Concomitant]
  4. FOSAMAX [Concomitant]

REACTIONS (2)
  - CREATININE URINE INCREASED [None]
  - PROTEINURIA [None]
